FAERS Safety Report 13651464 (Version 1)
Quarter: 2017Q2

REPORT INFORMATION
  Report Type: Spontaneous
  Country: US (occurrence: US)
  Receive Date: 20170614
  Receipt Date: 20170614
  Transmission Date: 20170830
  Serious: Yes (Hospitalization, Other)
  Sender: FDA-Public Use
  Company Number: US-SAOL THERAPEUTICS-2017SAO01009

PATIENT
  Age: 48 Year
  Sex: Male

DRUGS (3)
  1. COMPOUNDED BACLOFEN [Suspect]
     Active Substance: BACLOFEN
     Indication: SPINAL PAIN
  2. COMPOUNDED BACLOFEN [Suspect]
     Active Substance: BACLOFEN
     Indication: PAIN
     Dosage: UNK
     Route: 037
  3. DILAUDID [Suspect]
     Active Substance: HYDROMORPHONE HYDROCHLORIDE
     Dosage: 9.997 MG, \DAY
     Route: 037

REACTIONS (5)
  - Incorrect dosage administered [Unknown]
  - Overdose [Unknown]
  - Fall [Unknown]
  - Off label use [Unknown]
  - Head injury [Unknown]

NARRATIVE: CASE EVENT DATE: 20170605
